FAERS Safety Report 16481964 (Version 1)
Quarter: 2019Q2

REPORT INFORMATION
  Report Type: Spontaneous
  Country: IT (occurrence: IT)
  Receive Date: 20190627
  Receipt Date: 20190627
  Transmission Date: 20190711
  Serious: Yes (Other)
  Sender: FDA-Public Use
  Company Number: IT-ACCORD-135113

PATIENT
  Age: 41 Year
  Sex: Female
  Weight: 53 kg

DRUGS (1)
  1. QUETIAPINE. [Suspect]
     Active Substance: QUETIAPINE
     Indication: BIPOLAR DISORDER
     Route: 048
     Dates: start: 20190110, end: 20190315

REACTIONS (2)
  - Amylase increased [Recovered/Resolved with Sequelae]
  - Lipase increased [Recovered/Resolved with Sequelae]

NARRATIVE: CASE EVENT DATE: 20190110
